FAERS Safety Report 20705645 (Version 1)
Quarter: 2022Q2

REPORT INFORMATION
  Report Type: Spontaneous
  Country: US (occurrence: None)
  Receive Date: 20220412
  Receipt Date: 20220412
  Transmission Date: 20220721
  Serious: Yes (Disabling)
  Sender: FDA-Public Use
  Company Number: None

PATIENT
  Age: 67 Year
  Sex: Male
  Weight: 72 kg

DRUGS (1)
  1. TERAZOSIN [Suspect]
     Active Substance: TERAZOSIN HYDROCHLORIDE
     Indication: Prostatic disorder
     Dosage: OTHER QUANTITY : 1600 CAPSULE(S);?FREQUENCY : 4 TIMES A DAY;?
     Route: 048
     Dates: start: 20160101, end: 20220110

REACTIONS (7)
  - Somnambulism [None]
  - Fall [None]
  - Head injury [None]
  - Eye swelling [None]
  - Wound [None]
  - Haemorrhage [None]
  - Rib fracture [None]

NARRATIVE: CASE EVENT DATE: 20210501
